FAERS Safety Report 25627117 (Version 1)
Quarter: 2025Q3

REPORT INFORMATION
  Report Type: Spontaneous
  Country: CH (occurrence: CH)
  Receive Date: 20250731
  Receipt Date: 20250731
  Transmission Date: 20251020
  Serious: Yes (Life-Threatening, Other)
  Sender: ALEXION PHARMACEUTICALS
  Company Number: None

PATIENT
  Age: 56 Year
  Sex: Male
  Weight: 150 kg

DRUGS (14)
  1. XIGDUO XR [Suspect]
     Active Substance: DAPAGLIFLOZIN PROPANEDIOL\METFORMIN HYDROCHLORIDE
  2. OZEMPIC [Suspect]
     Active Substance: SEMAGLUTIDE
  3. EMPAGLIFLOZIN\METFORMIN HYDROCHLORIDE [Concomitant]
     Active Substance: EMPAGLIFLOZIN\METFORMIN HYDROCHLORIDE
  4. Vitamin C Burgerstein [Concomitant]
  5. OMEGA 3 [Concomitant]
     Active Substance: CAPSAICIN
  6. CHOLECALCIFEROL [Concomitant]
     Active Substance: CHOLECALCIFEROL
  7. RYBELSUS [Concomitant]
     Active Substance: SEMAGLUTIDE
  8. Olmesartan/amlodipin/hct mylan [Concomitant]
  9. ALDACTONE [Concomitant]
     Active Substance: SPIRONOLACTONE
  10. ATORVASTATIN [Concomitant]
     Active Substance: ATORVASTATIN
  11. EZETIMIBE [Concomitant]
     Active Substance: EZETIMIBE
  12. Burgerstein zinkvital [Concomitant]
  13. Burgerstein Selenvital [Concomitant]
  14. CALCIUM\CHOLECALCIFEROL [Concomitant]
     Active Substance: CALCIUM\CHOLECALCIFEROL

REACTIONS (1)
  - Pulmonary embolism [Not Recovered/Not Resolved]

NARRATIVE: CASE EVENT DATE: 20250705
